FAERS Safety Report 5613094-2 (Version None)
Quarter: 2008Q1

REPORT INFORMATION
  Report Type: 
  Country: None (occurrence: None)
  Receive Date: 20080204
  Receipt Date: 20080125
  Transmission Date: 20080703
  Serious: Yes (Other)
  Sender: FDA-Public Use
  Company Number: FI-PFIZER INC-2008007941

PATIENT
  Sex: Female

DRUGS (4)
  1. CELEBRA [Suspect]
     Indication: INFLAMMATION
     Route: 048
     Dates: start: 20071101, end: 20071104
  2. THYROXIN [Concomitant]
  3. CHOLESTEROL- AND TRIGLYCERIDE REDUCERS [Concomitant]
  4. ANTIHYPERTENSIVES [Concomitant]

REACTIONS (2)
  - JAUNDICE [None]
  - LIVER INJURY [None]
